FAERS Safety Report 7855239-X (Version None)
Quarter: 2011Q4

REPORT INFORMATION
  Report Type: 
  Country: None (occurrence: None)
  Receive Date: 20111026
  Receipt Date: 20111021
  Transmission Date: 20120403
  Serious: Yes (Other)
  Sender: FDA-Public Use
  Company Number: GB-PFIZER INC-2011256335

PATIENT
  Age: 20 Year
  Sex: Male

DRUGS (3)
  1. PROCYCLIDINE [Concomitant]
     Dosage: UNK
  2. LYRICA [Suspect]
     Indication: ANXIETY
     Dosage: 50 MG, UNK
     Route: 048
     Dates: start: 20110824, end: 20110930
  3. RISPERIDONE [Concomitant]
     Dosage: UNK

REACTIONS (2)
  - OCULOGYRIC CRISIS [None]
  - TIC [None]
